FAERS Safety Report 10282409 (Version 1)
Quarter: 2014Q3

REPORT INFORMATION
  Report Type: Spontaneous
  Country: AU (occurrence: AU)
  Receive Date: 20140707
  Receipt Date: 20140707
  Transmission Date: 20150326
  Serious: Yes (Other)
  Sender: FDA-Public Use
  Company Number: PHHY2014AU083374

PATIENT
  Age: 39 Year
  Sex: Female

DRUGS (2)
  1. CARBAMAZEPINE. [Suspect]
     Active Substance: CARBAMAZEPINE
     Dosage: 7.2 G
  2. AMISULPRIDE [Concomitant]
     Active Substance: AMISULPRIDE

REACTIONS (2)
  - Overdose [Unknown]
  - Toxicity to various agents [Unknown]
